FAERS Safety Report 9603405 (Version 2)
Quarter: 2013Q4

REPORT INFORMATION
  Report Type: Spontaneous
  Country: US (occurrence: US)
  Receive Date: 20131007
  Receipt Date: 20131007
  Transmission Date: 20140711
  Serious: Yes (Hospitalization, Other)
  Sender: FDA-Public Use
  Company Number: US-CELGENEUS-163-21880-13091740

PATIENT
  Sex: Female
  Weight: 78.54 kg

DRUGS (2)
  1. REVLIMID [Suspect]
     Indication: PLASMA CELL MYELOMA
     Dosage: 10 MILLIGRAM
     Route: 048
     Dates: start: 201308
  2. REVLIMID [Suspect]
     Indication: MYELODYSPLASTIC SYNDROME

REACTIONS (5)
  - Jaw disorder [Unknown]
  - Oedema mouth [Unknown]
  - Pyrexia [Unknown]
  - Haemoglobin decreased [Unknown]
  - Rash [Unknown]
